FAERS Safety Report 13513926 (Version 4)
Quarter: 2017Q4

REPORT INFORMATION
  Report Type: Spontaneous
  Country: US (occurrence: US)
  Receive Date: 20170504
  Receipt Date: 20171127
  Transmission Date: 20180320
  Serious: Yes (Hospitalization)
  Sender: FDA-Public Use
  Company Number: US-PFIZER INC-2017190948

PATIENT
  Age: 58 Year
  Sex: Female

DRUGS (2)
  1. METHOTREXATE SODIUM. [Suspect]
     Active Substance: METHOTREXATE SODIUM
     Dosage: UNK
  2. XELJANZ XR [Suspect]
     Active Substance: TOFACITINIB CITRATE
     Dosage: 11 MG, UNK

REACTIONS (7)
  - Feeling hot [Unknown]
  - Erythema [Unknown]
  - Vomiting [Not Recovered/Not Resolved]
  - Alopecia [Unknown]
  - Peripheral swelling [Unknown]
  - Chronic obstructive pulmonary disease [Unknown]
  - Hypertension [Unknown]

NARRATIVE: CASE EVENT DATE: 20170421
